FAERS Safety Report 11922165 (Version 1)
Quarter: 2016Q1

REPORT INFORMATION
  Report Type: Spontaneous
  Country: RU (occurrence: RU)
  Receive Date: 20160115
  Receipt Date: 20160115
  Transmission Date: 20160526
  Serious: Yes (Death, Other)
  Sender: FDA-Public Use
  Company Number: RU-GLAXOSMITHKLINE-RU2016GSK004853

PATIENT
  Age: 63 Year
  Sex: Male

DRUGS (1)
  1. COLDREX HOTREM BLACKCURRANT [Suspect]
     Active Substance: ACETAMINOPHEN\ASCORBIC ACID\PHENYLEPHRINE
     Indication: PRODUCT USED FOR UNKNOWN INDICATION
     Dosage: UNK

REACTIONS (2)
  - Sudden death [Fatal]
  - Blood pressure increased [Unknown]

NARRATIVE: CASE EVENT DATE: 2002
